FAERS Safety Report 10922738 (Version 1)
Quarter: 2015Q1

REPORT INFORMATION
  Report Type: Spontaneous
  Country: AU (occurrence: AU)
  Receive Date: 20150317
  Receipt Date: 20150317
  Transmission Date: 20150721
  Serious: Yes (Life-Threatening)
  Sender: FDA-Public Use
  Company Number: AU-ASTRAZENECA-2015SE24110

PATIENT
  Age: 24 Year
  Sex: Male
  Weight: 93 kg

DRUGS (6)
  1. SEROQUEL [Suspect]
     Active Substance: QUETIAPINE FUMARATE
     Route: 048
  2. FLUOXETINE HYDROCHLORIDE. [Suspect]
     Active Substance: FLUOXETINE HYDROCHLORIDE
     Route: 065
  3. HALDOL DECANOATE [Concomitant]
     Active Substance: HALOPERIDOL DECANOATE
  4. ABILIFY [Suspect]
     Active Substance: ARIPIPRAZOLE
     Route: 065
  5. RISPERIDONE. [Concomitant]
     Active Substance: RISPERIDONE
  6. PANADOL [Concomitant]
     Active Substance: ACETAMINOPHEN

REACTIONS (11)
  - Gynaecomastia [Not Recovered/Not Resolved]
  - Sleep terror [Not Recovered/Not Resolved]
  - Aggression [Not Recovered/Not Resolved]
  - Vision blurred [Not Recovered/Not Resolved]
  - Palpitations [Not Recovered/Not Resolved]
  - Monoplegia [Not Recovered/Not Resolved]
  - Fracture [Not Recovered/Not Resolved]
  - Panic attack [Not Recovered/Not Resolved]
  - Hyperglycaemia [Not Recovered/Not Resolved]
  - Mania [Not Recovered/Not Resolved]
  - Nightmare [Not Recovered/Not Resolved]
